FAERS Safety Report 9980998 (Version 2)
Quarter: 2014Q1

REPORT INFORMATION
  Report Type: Spontaneous
  Country: US (occurrence: US)
  Receive Date: 20140307
  Receipt Date: 20140324
  Transmission Date: 20141002
  Serious: No
  Sender: FDA-Public Use
  Company Number: US-PFIZER INC-2014065469

PATIENT
  Age: 80 Year
  Sex: Male
  Weight: 82.09 kg

DRUGS (2)
  1. SUTENT [Suspect]
     Indication: MALIGNANT NEOPLASM OF ISLETS OF LANGERHANS
     Dosage: 37.5 MG, 1X/DAY
     Dates: start: 20140103, end: 20140312
  2. LANSOPRAZOLE [Concomitant]
     Indication: GASTROOESOPHAGEAL REFLUX DISEASE
     Dosage: 40 MG, 1X/DAY

REACTIONS (3)
  - Disease progression [Unknown]
  - Malignant neoplasm of islets of Langerhans [Unknown]
  - Dry skin [Recovered/Resolved]
